FAERS Safety Report 4472790-3 (Version None)
Quarter: 2004Q4

REPORT INFORMATION
  Report Type: 
  Country: None (occurrence: None)
  Receive Date: 20041012
  Receipt Date: 20041012
  Transmission Date: 20050328
  Serious: Yes (Death)
  Sender: FDA-Public Use
  Company Number: None

PATIENT
  Age: 9 Year
  Sex: Male
  Weight: 29.4838 kg

DRUGS (2)
  1. DURAGESIC [Suspect]
     Indication: POST PROCEDURAL PAIN
     Dosage: 1X 72 HOURS 1
     Dates: start: 20020710, end: 20020711
  2. DURAGESIC [Suspect]
     Indication: TONSILLECTOMY
     Dosage: 1X 72 HOURS 1
     Dates: start: 20020710, end: 20020711

REACTIONS (1)
  - DRUG TOXICITY [None]
